FAERS Safety Report 16789397 (Version 1)
Quarter: 2019Q3

REPORT INFORMATION
  Report Type: Spontaneous
  Country: US (occurrence: US)
  Receive Date: 20190910
  Receipt Date: 20190910
  Transmission Date: 20191005
  Serious: No
  Sender: FDA-Public Use
  Company Number: US-LUPIN PHARMACEUTICALS INC.-2019-05545

PATIENT
  Sex: Male

DRUGS (3)
  1. LISINOPRIL TABLETS [Suspect]
     Active Substance: LISINOPRIL
     Indication: HYPERTENSION
     Dosage: 10 MILLIGRAM
     Route: 065
  2. LISINOPRIL TABLETS [Suspect]
     Active Substance: LISINOPRIL
     Dosage: 40 MILLIGRAM
     Route: 065
  3. LISINOPRIL TABLETS [Suspect]
     Active Substance: LISINOPRIL
     Dosage: 20 MILLIGRAM
     Route: 065

REACTIONS (2)
  - Therapeutic product effect incomplete [Unknown]
  - Drug ineffective [Unknown]
